FAERS Safety Report 8792916 (Version 2)
Quarter: 2012Q4

REPORT INFORMATION
  Report Type: 
  Country: US (occurrence: US)
  Receive Date: 20120918
  Receipt Date: 20121011
  Transmission Date: 20130627
  Serious: Yes (Other)
  Sender: FDA-Public Use
  Company Number: US-PFIZER INC-2012228161

PATIENT
  Age: 61 Year
  Sex: Female

DRUGS (1)
  1. DILANTIN [Suspect]
     Dosage: UNK
     Route: 048
     Dates: start: 20110913

REACTIONS (1)
  - Convulsion [Unknown]
